FAERS Safety Report 14274415 (Version 1)
Quarter: 2017Q4

REPORT INFORMATION
  Report Type: Spontaneous
  Country: DE (occurrence: DE)
  Receive Date: 20171211
  Receipt Date: 20171211
  Transmission Date: 20180321
  Serious: Yes (Hospitalization, Other)
  Sender: FDA-Public Use
  Company Number: DE-OTSUKA-2016_025047

PATIENT
  Sex: Male

DRUGS (2)
  1. ABILIFY [Suspect]
     Active Substance: ARIPIPRAZOLE
     Indication: SCHIZOPHRENIA
     Dosage: 1 DF, QD
     Route: 048
  2. CLOZAPINE. [Concomitant]
     Active Substance: CLOZAPINE
     Indication: SCHIZOPHRENIA
     Dosage: 10 MG, QD
     Route: 065

REACTIONS (5)
  - Vertigo [Recovered/Resolved]
  - Urinary retention [Recovered/Resolved]
  - Cardiovascular disorder [Recovered/Resolved]
  - Hospitalisation [Unknown]
  - Prescribed underdose [Unknown]
